FAERS Safety Report 4364233-5 (Version None)
Quarter: 2004Q2

REPORT INFORMATION
  Report Type: 
  Country: None (occurrence: None)
  Receive Date: 20040519
  Receipt Date: 20031103
  Transmission Date: 20050107
  Serious: Yes (Hospitalization, Other)
  Sender: FDA-Public Use
  Company Number: KII-2003-0010249

PATIENT
  Age: 36 Year
  Sex: Female

DRUGS (3)
  1. OXYCONTIN [Suspect]
     Indication: DRUG USE FOR UNKNOWN INDICATION
  2. MORPHINE SULFATE [Suspect]
     Indication: DRUG USE FOR UNKNOWN INDICATION
  3. BENZODIAZEPINE DERIVATIVES [Suspect]
     Indication: DRUG USE FOR UNKNOWN INDICATION

REACTIONS (8)
  - BODY TEMPERATURE DECREASED [None]
  - COMA [None]
  - DRUG ABUSER [None]
  - DRUG SCREEN POSITIVE [None]
  - MEDICATION ERROR [None]
  - MIOSIS [None]
  - MULTIPLE DRUG OVERDOSE [None]
  - SELF-MEDICATION [None]
